FAERS Safety Report 18700611 (Version 9)
Quarter: 2022Q3

REPORT INFORMATION
  Report Type: Report from Study
  Country: US (occurrence: US)
  Receive Date: 20210105
  Receipt Date: 20220809
  Transmission Date: 20221027
  Serious: Yes (Other)
  Sender: FDA-Public Use
  Company Number: NVSC2021US000894

PATIENT
  Sex: Female

DRUGS (2)
  1. KESIMPTA [Suspect]
     Active Substance: OFATUMUMAB
     Indication: Relapsing multiple sclerosis
     Dosage: UNK
     Route: 065
     Dates: start: 20201218
  2. KESIMPTA [Suspect]
     Active Substance: OFATUMUMAB
     Dosage: UNK, QMO
     Route: 058

REACTIONS (9)
  - Non-Hodgkin^s lymphoma [Unknown]
  - Influenza like illness [Recovered/Resolved]
  - Malaise [Unknown]
  - Platelet count decreased [Unknown]
  - Muscular weakness [Unknown]
  - Pain in extremity [Unknown]
  - Neoplasm skin [Unknown]
  - Asthenia [Unknown]
  - Lymphoedema [Unknown]
